FAERS Safety Report 8485503-5 (Version None)
Quarter: 2012Q3

REPORT INFORMATION
  Report Type: 
  Country: None (occurrence: None)
  Receive Date: 20120703
  Receipt Date: 20120626
  Transmission Date: 20120928
  Serious: Yes (Other)
  Sender: FDA-Public Use
  Company Number: IN-PFIZER INC-2012067962

PATIENT
  Age: 50 Year
  Sex: Male

DRUGS (1)
  1. SUTENT [Suspect]
     Indication: GASTROINTESTINAL STROMAL TUMOUR
     Dosage: 50 MG, 1X/DAY
     Route: 048
     Dates: start: 20120227, end: 20120509

REACTIONS (5)
  - ORAL MUCOSAL ERYTHEMA [None]
  - ABDOMINAL ABSCESS [None]
  - ERYTHEMA [None]
  - YELLOW SKIN [None]
  - CONSTIPATION [None]
